FAERS Safety Report 9979579 (Version 2)
Quarter: 2014Q1

REPORT INFORMATION
  Report Type: Report from Study
  Country: US (occurrence: US)
  Receive Date: 20140306
  Receipt Date: 20140306
  Transmission Date: 20141002
  Serious: No
  Sender: FDA-Public Use
  Company Number: US-ABBVIE-13P-163-1165062-00

PATIENT
  Age: 64 Year
  Sex: Female
  Weight: 127.12 kg

DRUGS (14)
  1. HUMIRA [Suspect]
     Indication: RHEUMATOID ARTHRITIS
     Route: 058
     Dates: start: 201308
  2. COREG [Concomitant]
     Indication: VENTRICULAR ARRHYTHMIA
  3. LOTENSIN [Concomitant]
     Indication: VENTRICULAR ARRHYTHMIA
  4. LASIX [Concomitant]
     Indication: SWELLING
  5. MAGNESIUM [Concomitant]
     Indication: BLOOD MAGNESIUM DECREASED
  6. VITAMIN B [Concomitant]
     Indication: VITAMIN B COMPLEX DEFICIENCY
  7. METFORMIN [Concomitant]
     Indication: DIABETES MELLITUS
  8. CELEBREX [Concomitant]
     Indication: ARTHRITIS
  9. COSOPT [Concomitant]
     Indication: GLAUCOMA
  10. XALATAN [Concomitant]
     Indication: GLAUCOMA
  11. ASPIRIN [Concomitant]
     Indication: PROPHYLAXIS
  12. METHOTREXATE [Concomitant]
     Indication: RHEUMATOID ARTHRITIS
  13. LORTAB [Concomitant]
     Indication: PAIN
  14. AMBIEN [Concomitant]
     Indication: INSOMNIA

REACTIONS (9)
  - Joint stiffness [Not Recovered/Not Resolved]
  - Injection site pain [Recovered/Resolved]
  - Device malfunction [Recovered/Resolved]
  - Drug dose omission [Recovered/Resolved]
  - Musculoskeletal stiffness [Unknown]
  - Wrong technique in drug usage process [Unknown]
  - Needle issue [Unknown]
  - Local swelling [Unknown]
  - Incorrect dose administered [Unknown]
